FAERS Safety Report 6124680-8 (Version None)
Quarter: 2009Q1

REPORT INFORMATION
  Report Type: 
  Country: None (occurrence: None)
  Receive Date: 20090319
  Receipt Date: 20090304
  Transmission Date: 20090719
  Serious: Yes (Hospitalization)
  Sender: FDA-Public Use
  Company Number: DE-GENENTECH-279105

PATIENT
  Sex: Female

DRUGS (6)
  1. HERCEPTIN [Suspect]
     Indication: DRUG USE FOR UNKNOWN INDICATION
     Dosage: UNK
  2. CEFOTAXIME [Concomitant]
     Indication: PROPHYLAXIS
     Dosage: 3 G, UNK
     Route: 042
     Dates: start: 20090225, end: 20090227
  3. CLEXANE [Concomitant]
     Indication: PROPHYLAXIS
     Dosage: 0.2 UNK, SINGLE
     Route: 058
     Dates: start: 20090225, end: 20090225
  4. CLEXANE [Concomitant]
     Dosage: 0.4 UNK, SINGLE
     Route: 058
     Dates: start: 20090226, end: 20090226
  5. PARACETAMOL [Concomitant]
     Indication: PAIN
     Dosage: 500 MG, UNK
     Route: 048
     Dates: start: 20090226, end: 20090226
  6. STILNOX [Concomitant]
     Indication: INSOMNIA
     Dosage: UNK
     Route: 048
     Dates: start: 20090226, end: 20090226

REACTIONS (1)
  - BREAST PROSTHESIS IMPLANTATION [None]
